FAERS Safety Report 14367803 (Version 1)
Quarter: 2018Q1

REPORT INFORMATION
  Report Type: Other
  Country: GB (occurrence: GB)
  Receive Date: 20180109
  Receipt Date: 20180109
  Transmission Date: 20180509
  Serious: Yes (Death, Other)
  Sender: FDA-Public Use
  Company Number: GB-LUPIN PHARMACEUTICALS INC.-2017-07804

PATIENT
  Age: 44 Year
  Sex: Female

DRUGS (6)
  1. COCODAMOL [Suspect]
     Active Substance: ACETAMINOPHEN\CODEINE PHOSPHATE
     Indication: PAIN
     Dosage: 28 DF, (112 TABLET, FOR TWO WEEKS)
     Route: 048
  2. PARACETAMOL [Suspect]
     Active Substance: ACETAMINOPHEN
     Indication: PRODUCT USED FOR UNKNOWN INDICATION
     Dosage: UNKNOWN
     Route: 065
  3. MORPHINE SULPHATE [Suspect]
     Active Substance: MORPHINE SULFATE
     Indication: PRODUCT USED FOR UNKNOWN INDICATION
     Dosage: 6-7 TABLETS
     Route: 065
     Dates: start: 20161014, end: 20161014
  4. ZOPICLONE [Suspect]
     Active Substance: ZOPICLONE
     Indication: SLEEP DISORDER
     Dosage: 14 TABLETS FOR 2 WEEKS
     Route: 048
  5. PREGABALIN. [Suspect]
     Active Substance: PREGABALIN
     Indication: PRODUCT USED FOR UNKNOWN INDICATION
     Dosage: 3 DF, QD
     Route: 065
     Dates: start: 20161015, end: 20161015
  6. COCODAMOL [Suspect]
     Active Substance: ACETAMINOPHEN\CODEINE PHOSPHATE
     Dosage: UNK
     Route: 048

REACTIONS (9)
  - Prescription drug used without a prescription [Fatal]
  - Accidental overdose [Fatal]
  - Vision blurred [Fatal]
  - Toxicity to various agents [Fatal]
  - Eye pain [Fatal]
  - Drug abuse [Fatal]
  - Drug diversion [Unknown]
  - Gait disturbance [Fatal]
  - Dysarthria [Fatal]

NARRATIVE: CASE EVENT DATE: 201610
